FAERS Safety Report 8906139 (Version 1)
Quarter: 2012Q4

REPORT INFORMATION
  Report Type: 
  Country: US (occurrence: US)
  Receive Date: 20121112
  Receipt Date: 20121112
  Transmission Date: 20130627
  Serious: Yes (Hospitalization)
  Sender: FDA-Public Use
  Company Number: US-AMGEN-USASP2012071424

PATIENT
  Age: 43 Year
  Sex: Female

DRUGS (2)
  1. ENBREL [Suspect]
     Indication: RHEUMATOID ARTHRITIS
     Dosage: 25 mg, 3 times/wk
     Dates: start: 20070101
  2. LEFLUNOMIDE [Concomitant]
     Dosage: UNK
     Dates: start: 20120612, end: 20120829

REACTIONS (5)
  - Rheumatoid lung [Recovered/Resolved]
  - Dyspnoea [Not Recovered/Not Resolved]
  - Fibrin D dimer increased [Recovered/Resolved]
  - Arthralgia [Recovered/Resolved]
  - Pain in jaw [Recovered/Resolved]
